FAERS Safety Report 5576651-8 (Version None)
Quarter: 2007Q4

REPORT INFORMATION
  Report Type: 
  Country: None (occurrence: None)
  Receive Date: 20071228
  Receipt Date: 20071117
  Transmission Date: 20080405
  Serious: Yes (Death, Other)
  Sender: FDA-Public Use
  Company Number: CH-GENENTECH-253402

PATIENT
  Age: 47 Year
  Sex: Female

DRUGS (6)
  1. HERCEPTIN [Suspect]
     Indication: BREAST CANCER METASTATIC
     Dosage: 6 MG/KG, 3/WEEK
     Dates: start: 20040615
  2. HERCEPTIN [Suspect]
     Dosage: 2 MG/KG, 1/WEEK
  3. HERCEPTIN [Suspect]
     Dosage: 6 MG/KG, 3/WEEK
  4. NAVELBINE [Concomitant]
     Indication: DRUG USE FOR UNKNOWN INDICATION
     Dates: start: 20041215, end: 20051215
  5. CAELYX [Concomitant]
     Indication: DRUG USE FOR UNKNOWN INDICATION
     Dates: start: 20061115, end: 20061115
  6. GEMZAR [Concomitant]
     Indication: DRUG USE FOR UNKNOWN INDICATION
     Dates: start: 20061215, end: 20070215

REACTIONS (3)
  - HYPERSENSITIVITY [None]
  - METASTATIC NEOPLASM [None]
  - OSTEONECROSIS [None]
